FAERS Safety Report 6982077-2 (Version None)
Quarter: 2010Q3

REPORT INFORMATION
  Report Type: 
  Country: None (occurrence: None)
  Receive Date: 20100909
  Receipt Date: 20100826
  Transmission Date: 20110219
  Serious: Yes (Life-Threatening, Hospitalization)
  Sender: FDA-Public Use
  Company Number: IDA-00428

PATIENT
  Age: 26 Year
  Sex: Female

DRUGS (1)
  1. PROPRANOLOL [Suspect]
     Dosage: 40 MG DAILY ORAL FORMULATION: TABLET / DOSE TEXT: 90 TABLETS OF 40 MG ORAL FORMULATION: TABLET
     Route: 048

REACTIONS (9)
  - BLOOD CALCIUM DECREASED [None]
  - BLOOD POTASSIUM DECREASED [None]
  - BRADYCARDIA [None]
  - CYANOSIS [None]
  - JOINT DISLOCATION [None]
  - METABOLIC ACIDOSIS [None]
  - OVERDOSE [None]
  - SALIVARY HYPERSECRETION [None]
  - SHOCK [None]
